FAERS Safety Report 23975667 (Version 1)
Quarter: 2024Q2

REPORT INFORMATION
  Report Type: Spontaneous
  Country: JP (occurrence: JP)
  Receive Date: 20240614
  Receipt Date: 20240614
  Transmission Date: 20240716
  Serious: Yes (Hospitalization, Other)
  Sender: FDA-Public Use
  Company Number: JP-MSD-2406JPN000470J

PATIENT
  Age: 39 Year
  Sex: Female
  Weight: 54 kg

DRUGS (9)
  1. KEYTRUDA [Suspect]
     Active Substance: PEMBROLIZUMAB
     Indication: Squamous cell carcinoma of the cervix
     Dosage: 200 MILLIGRAM
     Route: 041
     Dates: start: 20230815, end: 20240109
  2. PACLITAXEL [Suspect]
     Active Substance: PACLITAXEL
     Indication: Squamous cell carcinoma of the cervix
     Dosage: UNK
     Route: 065
     Dates: start: 20230815, end: 2023
  3. CARBOPLATIN [Suspect]
     Active Substance: CARBOPLATIN
     Indication: Squamous cell carcinoma of the cervix
     Dosage: UNK
     Route: 065
     Dates: start: 20230815, end: 2023
  4. HYDROMORPHONE HYDROCHLORIDE [Concomitant]
     Active Substance: HYDROMORPHONE HYDROCHLORIDE
     Dosage: 1T, Q24H
     Route: 065
  5. HYDROMORPHONE HYDROCHLORIDE [Concomitant]
     Active Substance: HYDROMORPHONE HYDROCHLORIDE
     Dosage: 1T, QID
     Route: 065
  6. EDOXABAN TOSYLATE [Concomitant]
     Active Substance: EDOXABAN TOSYLATE
     Dosage: 1T, QD
     Route: 065
  7. TARLIGE OD [Concomitant]
     Dosage: 1T, BID
     Route: 065
  8. NAUZELIN [Concomitant]
     Active Substance: DOMPERIDONE
     Dosage: 1T, TID
     Route: 065
  9. CALONAL [Concomitant]
     Active Substance: ACETAMINOPHEN
     Dosage: 2T, TID
     Route: 065

REACTIONS (3)
  - Thyrotoxic crisis [Recovering/Resolving]
  - Adrenocorticotropic hormone deficiency [Recovering/Resolving]
  - Thyroiditis [Recovering/Resolving]

NARRATIVE: CASE EVENT DATE: 20240126
